FAERS Safety Report 4688096-3 (Version None)
Quarter: 2005Q2

REPORT INFORMATION
  Report Type: 
  Country: None (occurrence: None)
  Receive Date: 20050609
  Receipt Date: 20050527
  Transmission Date: 20051028
  Serious: Yes (Other)
  Sender: FDA-Public Use
  Company Number: 2005S1000105

PATIENT
  Age: 64 Year
  Sex: Male

DRUGS (3)
  1. CUBICIN [Suspect]
     Indication: BACTERAEMIA
     Dosage: 6 MG/KG; IV
     Route: 042
     Dates: end: 20050101
  2. CUBICIN [Suspect]
     Indication: MEDICAL DEVICE COMPLICATION
     Dosage: 6 MG/KG; IV
     Route: 042
     Dates: end: 20050101
  3. CUBICIN [Suspect]
     Indication: STAPHYLOCOCCAL INFECTION
     Dosage: 6 MG/KG; IV
     Route: 042
     Dates: end: 20050101

REACTIONS (5)
  - ABSCESS LIMB [None]
  - CATHETER RELATED INFECTION [None]
  - ENTEROCOCCAL SEPSIS [None]
  - PATHOGEN RESISTANCE [None]
  - WOUND INFECTION STAPHYLOCOCCAL [None]
